FAERS Safety Report 4399734-7 (Version None)
Quarter: 2004Q2

REPORT INFORMATION
  Report Type: 
  Country: None (occurrence: None)
  Receive Date: 20040608
  Receipt Date: 20040316
  Transmission Date: 20050107
  Serious: No
  Sender: FDA-Public Use
  Company Number: FROV000171

PATIENT
  Age: 51 Year
  Sex: Female

DRUGS (5)
  1. FROVA [Suspect]
     Indication: MIGRAINE
     Dosage: 2.5 MG; ORAL
     Route: 048
     Dates: start: 20040315, end: 20040315
  2. PRILOSEC [Concomitant]
  3. PREMPRO (MEDROXYPROGESTERONE ACETATE) [Concomitant]
  4. PROPRANOLOL [Concomitant]
  5. UNKNOWN HIGH BLOOD PRESSURE MEDICINE [Concomitant]

REACTIONS (1)
  - CHEST PAIN [None]
